FAERS Safety Report 9640598 (Version 1)
Quarter: 2013Q4

REPORT INFORMATION
  Report Type: Report from Study
  Country: US (occurrence: US)
  Receive Date: 20131023
  Receipt Date: 20131023
  Transmission Date: 20140711
  Serious: No
  Sender: FDA-Public Use
  Company Number: US-ABBVIE-13P-163-1135944-00

PATIENT
  Age: 24 Year
  Sex: Female
  Weight: 49.49 kg

DRUGS (3)
  1. LUPRON DEPOT [Suspect]
     Indication: ENDOMETRIOSIS
     Dates: start: 20130819
  2. HYDROCODONE [Concomitant]
     Indication: PAIN
  3. UNKNOWN MEDICATION [Concomitant]
     Indication: NAUSEA

REACTIONS (4)
  - Irritability [Recovered/Resolved]
  - Headache [Not Recovered/Not Resolved]
  - Hot flush [Not Recovered/Not Resolved]
  - Somnolence [Recovered/Resolved]
